FAERS Safety Report 24906461 (Version 6)
Quarter: 2025Q3

REPORT INFORMATION
  Report Type: Report from Study
  Country: CN (occurrence: CN)
  Receive Date: 20250130
  Receipt Date: 20250710
  Transmission Date: 20251021
  Serious: Yes (Hospitalization, Other)
  Sender: PFIZER
  Company Number: CN-TAKEDA-2024TUS061991

PATIENT
  Age: 21 Year
  Sex: Male
  Weight: 75 kg

DRUGS (14)
  1. BRENTUXIMAB VEDOTIN [Suspect]
     Active Substance: BRENTUXIMAB VEDOTIN
     Indication: Hodgkin^s disease
     Route: 041
     Dates: start: 20240611
  2. BRENTUXIMAB VEDOTIN [Suspect]
     Active Substance: BRENTUXIMAB VEDOTIN
     Route: 041
  3. BRENTUXIMAB VEDOTIN [Suspect]
     Active Substance: BRENTUXIMAB VEDOTIN
     Route: 041
     Dates: start: 20240921
  4. BRENTUXIMAB VEDOTIN [Suspect]
     Active Substance: BRENTUXIMAB VEDOTIN
     Route: 041
     Dates: start: 20241202
  5. DEXAMETHASONE SODIUM PHOSPHATE [Concomitant]
     Active Substance: DEXAMETHASONE SODIUM PHOSPHATE
     Indication: Chemotherapy side effect prophylaxis
     Dosage: 10 MILLIGRAM, QD
     Route: 042
     Dates: start: 20240607, end: 20240611
  6. PROMETHAZINE HYDROCHLORIDE [Concomitant]
     Active Substance: PROMETHAZINE HYDROCHLORIDE
     Indication: Infusion related reaction
     Route: 030
     Dates: start: 20240611, end: 20240611
  7. DEXRAZOXANE [Concomitant]
     Active Substance: DEXRAZOXANE
     Indication: Chemotherapy toxicity attenuation
     Route: 042
     Dates: start: 20240611, end: 20240611
  8. MAGNESIUM ISOGLYCYRRHIZINATE [Concomitant]
     Active Substance: MAGNESIUM ISOGLYCYRRHIZINATE
     Indication: Liver disorder
     Dosage: 150 MILLIGRAM, QD
     Route: 042
     Dates: start: 20240607, end: 20240612
  9. CALCIUM CARBONATE\CHOLECALCIFEROL [Concomitant]
     Active Substance: CALCIUM CARBONATE\CHOLECALCIFEROL
     Indication: Mineral supplementation
     Dosage: UNK UNK, QD
     Route: 048
     Dates: start: 20240607, end: 20240612
  10. AMILORIDE HYDROCHLORIDE\HYDROCHLOROTHIAZIDE [Concomitant]
     Active Substance: AMILORIDE HYDROCHLORIDE\HYDROCHLOROTHIAZIDE
     Indication: Polyuria
     Dosage: UNK UNK, QD
     Route: 048
     Dates: start: 20240607, end: 20240612
  11. FEBUXOSTAT [Concomitant]
     Active Substance: FEBUXOSTAT
     Indication: Blood uric acid decreased
     Dosage: 40 MG, 1X/DAY
     Route: 048
     Dates: start: 20240607, end: 20240612
  12. SODIUM BICARBONATE [Concomitant]
     Active Substance: SODIUM BICARBONATE
     Indication: Alkalosis
     Dosage: 125 MILLILITER, BID
     Route: 042
     Dates: start: 20240607, end: 20240612
  13. RABEPRAZOLE SODIUM [Concomitant]
     Active Substance: RABEPRAZOLE SODIUM
     Indication: Gastrorrhaphy
     Dosage: 20 MG, 2X/DAY
     Route: 042
     Dates: start: 20240607, end: 20240612
  14. FOSAPREPITANT DIMEGLUMINE [Concomitant]
     Active Substance: FOSAPREPITANT DIMEGLUMINE
     Indication: Prophylaxis of nausea and vomiting
     Route: 042
     Dates: start: 20240611, end: 20240611

REACTIONS (11)
  - Febrile neutropenia [Recovered/Resolved]
  - Hypokalaemia [Recovered/Resolved]
  - Pneumonia [Recovered/Resolved]
  - Lymphocyte count decreased [Unknown]
  - Neutrophil count decreased [Recovered/Resolved]
  - Pyrexia [Recovered/Resolved]
  - Fibrin D dimer increased [Unknown]
  - Hepatic function abnormal [Recovered/Resolved]
  - Hypocalcaemia [Recovered/Resolved]
  - Anaemia [Recovered/Resolved]
  - Hypoaesthesia [Recovered/Resolved]

NARRATIVE: CASE EVENT DATE: 20240612
